FAERS Safety Report 8066134-8 (Version None)
Quarter: 2012Q1

REPORT INFORMATION
  Report Type: 
  Country: None (occurrence: None)
  Receive Date: 20120124
  Receipt Date: 20120112
  Transmission Date: 20120608
  Serious: Yes (Death, Hospitalization, Other)
  Sender: FDA-Public Use
  Company Number: DE-ROCHE-1018315

PATIENT
  Age: 74 Year
  Sex: Female
  Weight: 58 kg

DRUGS (4)
  1. FENTANYL [Concomitant]
  2. TOLPERISONE [Concomitant]
  3. PREDNISOLONE [Concomitant]
  4. BONIVA [Suspect]
     Indication: OSTEOPOROSIS
     Route: 042
     Dates: start: 20100416, end: 20110110

REACTIONS (6)
  - SEPSIS [None]
  - FALL [None]
  - SCIATICA [None]
  - CARDIAC DEATH [None]
  - CONSTIPATION [None]
  - PNEUMONIA [None]
